FAERS Safety Report 18960290 (Version 1)
Quarter: 2021Q1

REPORT INFORMATION
  Report Type: Spontaneous
  Country: SI (occurrence: SI)
  Receive Date: 20210303
  Receipt Date: 20210303
  Transmission Date: 20210420
  Serious: Yes (Other)
  Sender: FDA-Public Use
  Company Number: SI-ASTRAZENECA-2021A081151

PATIENT
  Age: 78 Year
  Sex: Male

DRUGS (1)
  1. XIGDUO XR [Suspect]
     Active Substance: DAPAGLIFLOZIN PROPANEDIOL\METFORMIN HYDROCHLORIDE
     Indication: TYPE 2 DIABETES MELLITUS
     Dosage: 5/1000 MG TWO TIMES A DAY
     Route: 048
     Dates: start: 20191213, end: 20201116

REACTIONS (7)
  - Neuralgia [Unknown]
  - Hypertension [Unknown]
  - Finger amputation [Recovered/Resolved with Sequelae]
  - Cerebrovascular accident [Recovered/Resolved with Sequelae]
  - Atrial fibrillation [Unknown]
  - Osteomyelitis [Recovered/Resolved with Sequelae]
  - Diabetic neuropathy [Unknown]

NARRATIVE: CASE EVENT DATE: 20201116
